FAERS Safety Report 15517603 (Version 2)
Quarter: 2018Q4

REPORT INFORMATION
  Report Type: Spontaneous
  Country: BR (occurrence: BR)
  Receive Date: 20181017
  Receipt Date: 20181213
  Transmission Date: 20190205
  Serious: Yes (Death, Other)
  Sender: FDA-Public Use
  Company Number: BR-BIOMARINAP-BR-2018-120369

PATIENT
  Age: 18 Month
  Sex: Male

DRUGS (5)
  1. CEFEPRIME [Concomitant]
     Indication: PRODUCT USED FOR UNKNOWN INDICATION
  2. ALDURAZYME [Suspect]
     Active Substance: LARONIDASE
     Indication: MUCOPOLYSACCHARIDOSIS I
     Dosage: 2 DOSAGE FORM, QW
     Route: 041
     Dates: start: 20180620, end: 20180926
  3. MEROPENEM. [Concomitant]
     Active Substance: MEROPENEM
     Indication: PRODUCT USED FOR UNKNOWN INDICATION
  4. DIPHENHYDRAMINE. [Concomitant]
     Active Substance: DIPHENHYDRAMINE
     Indication: PRODUCT USED FOR UNKNOWN INDICATION
  5. PREDNISOLONE. [Concomitant]
     Active Substance: PREDNISOLONE
     Indication: PRODUCT USED FOR UNKNOWN INDICATION

REACTIONS (14)
  - Encephalitis [Unknown]
  - Increased bronchial secretion [Unknown]
  - Congenital tracheomalacia [Unknown]
  - Sepsis [Unknown]
  - Hyporesponsive to stimuli [Unknown]
  - Cardio-respiratory arrest [Unknown]
  - Pyrexia [Unknown]
  - Hypothermia [Unknown]
  - Septic shock [Fatal]
  - Tracheal stenosis [Unknown]
  - Serratia test positive [Unknown]
  - Tremor [Unknown]
  - Tracheitis [Unknown]
  - Cyanosis [Unknown]

NARRATIVE: CASE EVENT DATE: 20180930
